FAERS Safety Report 16017854 (Version 1)
Quarter: 2019Q1

REPORT INFORMATION
  Report Type: Spontaneous
  Country: US (occurrence: US)
  Receive Date: 20190228
  Receipt Date: 20190228
  Transmission Date: 20190418
  Serious: Yes (Disabling, Other)
  Sender: FDA-Public Use
  Company Number: US-ABBVIE-19S-163-2624795-00

PATIENT
  Sex: Male

DRUGS (2)
  1. DEPO-TESTOSTERONE [Concomitant]
     Active Substance: TESTOSTERONE CYPIONATE
     Indication: ANDROGEN REPLACEMENT THERAPY
     Dosage: APPROXIMATELY 60 MG
     Dates: start: 2004
  2. ANDROGEL [Suspect]
     Active Substance: TESTOSTERONE
     Indication: ANDROGEN REPLACEMENT THERAPY
     Route: 061
     Dates: start: 2000

REACTIONS (11)
  - Gait disturbance [Unknown]
  - Sluggishness [Unknown]
  - Fall [Unknown]
  - Head injury [Unknown]
  - Affect lability [Unknown]
  - Loss of personal independence in daily activities [Unknown]
  - Cerebrovascular accident [Unknown]
  - Impulsive behaviour [Unknown]
  - Ischaemic stroke [Recovered/Resolved]
  - Exaggerated startle response [Unknown]
  - Depression [Unknown]

NARRATIVE: CASE EVENT DATE: 2012
